FAERS Safety Report 9883324 (Version 5)
Quarter: 2014Q1

REPORT INFORMATION
  Report Type: Spontaneous
  Country: JP (occurrence: JP)
  Receive Date: 20140210
  Receipt Date: 20140322
  Transmission Date: 20141002
  Serious: Yes (Hospitalization, Disabling, Other)
  Sender: FDA-Public Use
  Company Number: JP-ROCHE-1342659

PATIENT
  Age: 58 Year
  Sex: Male

DRUGS (11)
  1. DENOSINE [Suspect]
     Indication: CYTOMEGALOVIRUS TEST POSITIVE
     Dosage: FOR 14 DAYS
     Route: 041
     Dates: start: 201309
  2. DENOSINE [Suspect]
     Indication: CYTOMEGALOVIRUS CHORIORETINITIS
     Route: 041
     Dates: start: 20140115, end: 20140125
  3. DAIPHEN [Concomitant]
     Route: 048
     Dates: start: 201307
  4. URSO [Concomitant]
     Route: 048
     Dates: start: 201307
  5. METHYLCOBALAMIN [Concomitant]
     Route: 048
     Dates: start: 201307
  6. NEXIUM [Concomitant]
     Route: 048
     Dates: start: 201307
  7. BAKTAR [Concomitant]
     Route: 048
     Dates: start: 201307
  8. ACICLOVIR [Concomitant]
     Route: 048
     Dates: start: 201307
  9. ITRIZOLE [Concomitant]
     Route: 048
     Dates: start: 201307
  10. MEDICON [Concomitant]
     Route: 048
     Dates: start: 20140115, end: 20140128
  11. THEOPHYLLINE [Concomitant]
     Route: 048
     Dates: start: 20140118, end: 20140128

REACTIONS (4)
  - Retinal detachment [Recovering/Resolving]
  - Vitreous haemorrhage [Not Recovered/Not Resolved]
  - Retinal haemorrhage [Recovering/Resolving]
  - Neuropathy peripheral [Recovering/Resolving]
